FAERS Safety Report 18786084 (Version 1)
Quarter: 2021Q1

REPORT INFORMATION
  Report Type: Report from Study
  Country: US (occurrence: US)
  Receive Date: 20210126
  Receipt Date: 20210126
  Transmission Date: 20210419
  Serious: Yes (Other)
  Sender: FDA-Public Use
  Company Number: US-BEH-2021127610

PATIENT
  Age: 53 Year
  Sex: Male

DRUGS (1)
  1. HAEGARDA [Suspect]
     Active Substance: HUMAN C1-ESTERASE INHIBITOR
     Dosage: 0.01 IU/KG
     Route: 058
     Dates: start: 20210122, end: 20210122

REACTIONS (2)
  - Unevaluable event [Recovering/Resolving]
  - Product supply issue [Recovering/Resolving]

NARRATIVE: CASE EVENT DATE: 20210122
